FAERS Safety Report 8697564 (Version 4)
Quarter: 2012Q4

REPORT INFORMATION
  Report Type: 
  Country: US (occurrence: US)
  Receive Date: 20120801
  Receipt Date: 20121105
  Transmission Date: 20130627
  Serious: Yes (Other)
  Sender: FDA-Public Use
  Company Number: US-ASTRAZENECA-2012SE52292

PATIENT
  Age: 57 Year
  Sex: Female
  Weight: 58.5 kg

DRUGS (13)
  1. NEXIUM [Suspect]
     Indication: DYSPEPSIA
     Route: 048
     Dates: start: 20090301
  2. NEXIUM [Suspect]
     Indication: GASTROOESOPHAGEAL REFLUX DISEASE
     Route: 048
     Dates: start: 20090301
  3. NEXIUM [Suspect]
     Indication: IMPAIRED GASTRIC EMPTYING
     Route: 048
     Dates: start: 20090301
  4. NEXIUM [Suspect]
     Indication: HIATUS HERNIA
     Route: 048
     Dates: start: 20090301
  5. LISINOPRIL [Suspect]
     Indication: HYPERTENSION
     Route: 048
     Dates: start: 2004
  6. PRILOSEC [Suspect]
     Route: 048
     Dates: start: 2008
  7. THIAZIDE [Concomitant]
  8. ADVAIR [Concomitant]
  9. PROAIR [Concomitant]
  10. XANAX [Concomitant]
  11. ZOFRAN [Concomitant]
     Indication: NAUSEA
  12. ZANTAC [Concomitant]
     Dates: start: 2008
  13. COPAXONE [Concomitant]
     Indication: MULTIPLE SCLEROSIS

REACTIONS (18)
  - Multiple sclerosis [Unknown]
  - Vomiting [Unknown]
  - Nausea [Unknown]
  - Abdominal pain [Unknown]
  - Pain in extremity [Unknown]
  - Fall [Unknown]
  - Muscle spasms [Unknown]
  - Muscle spasticity [Unknown]
  - Aphagia [Unknown]
  - Hiatus hernia [Unknown]
  - Impaired gastric emptying [Unknown]
  - Gastric disorder [Unknown]
  - Eructation [Unknown]
  - Dyspepsia [Unknown]
  - Hypoaesthesia [Unknown]
  - Paraesthesia [Unknown]
  - Off label use [Unknown]
  - Drug ineffective [Unknown]
